FAERS Safety Report 8469578-5 (Version None)
Quarter: 2012Q2

REPORT INFORMATION
  Report Type: 
  Country: None (occurrence: None)
  Receive Date: 20120626
  Receipt Date: 20120619
  Transmission Date: 20120825
  Serious: Yes (Other)
  Sender: FDA-Public Use
  Company Number: US-TEVA-344067USA

PATIENT
  Sex: Male

DRUGS (1)
  1. COPAXONE [Suspect]
     Indication: MULTIPLE SCLEROSIS
     Route: 058
     Dates: start: 20120105

REACTIONS (6)
  - CARDIAC ARREST [None]
  - BLOOD POTASSIUM DECREASED [None]
  - CONVULSION [None]
  - NERVOUS SYSTEM DISORDER [None]
  - IMMEDIATE POST-INJECTION REACTION [None]
  - BLINDNESS [None]
